FAERS Safety Report 5713281-9 (Version None)
Quarter: 2008Q2

REPORT INFORMATION
  Report Type: 
  Country: None (occurrence: None)
  Receive Date: 20080422
  Receipt Date: 20080321
  Transmission Date: 20081010
  Serious: Yes (Hospitalization)
  Sender: FDA-Public Use
  Company Number: JP-ASTRAZENECA-2008AP02092

PATIENT
  Age: 34 Year
  Sex: Male
  Weight: 92 kg

DRUGS (1)
  1. OMEPRAZOLE [Suspect]
     Indication: REFLUX OESOPHAGITIS
     Route: 048
     Dates: start: 20080305, end: 20080315

REACTIONS (1)
  - GASTROENTERITIS [None]
